FAERS Safety Report 4865964-0 (Version None)
Quarter: 2005Q4

REPORT INFORMATION
  Report Type: 
  Country: None (occurrence: None)
  Receive Date: 20051226
  Receipt Date: 20051219
  Transmission Date: 20060501
  Serious: Yes (Hospitalization)
  Sender: FDA-Public Use
  Company Number: PHBS2005US18711

PATIENT
  Age: 47 Year
  Sex: Male

DRUGS (2)
  1. CLOZAPINE [Suspect]
     Indication: SCHIZOPHRENIA
     Dosage: 700 MG/D
     Route: 065
  2. DESMOPRESSIN [Suspect]
     Dosage: 10 UG, QHS

REACTIONS (19)
  - ABNORMAL BEHAVIOUR [None]
  - AGITATION [None]
  - BLOOD SODIUM DECREASED [None]
  - CONFUSIONAL STATE [None]
  - DEPRESSED LEVEL OF CONSCIOUSNESS [None]
  - DISORIENTATION [None]
  - DRUG LEVEL INCREASED [None]
  - ENURESIS [None]
  - GAIT DISTURBANCE [None]
  - HYPERHIDROSIS [None]
  - HYPONATRAEMIA [None]
  - HYPOREFLEXIA [None]
  - POLYDIPSIA PSYCHOGENIC [None]
  - PUPIL FIXED [None]
  - RESPIRATORY RATE INCREASED [None]
  - RESTLESSNESS [None]
  - SPEECH DISORDER [None]
  - TACHYCARDIA [None]
  - VOMITING [None]
